FAERS Safety Report 6239999-X (Version None)
Quarter: 2009Q2

REPORT INFORMATION
  Report Type: 
  Country: None (occurrence: None)
  Receive Date: 20090623
  Receipt Date: 20090608
  Transmission Date: 20091009
  Serious: Yes (Hospitalization, Other)
  Sender: FDA-Public Use
  Company Number: PHHY2009CZ21525

PATIENT
  Age: 73 Year
  Sex: Female

DRUGS (10)
  1. LESCOL XL [Suspect]
     Indication: HYPERLIPIDAEMIA
     Dosage: 80 MG PER DAY
     Route: 048
  2. WARFARIN SODIUM [Interacting]
     Indication: ANTICOAGULANT THERAPY
     Dosage: 26.25MG PER WEEK
     Route: 048
  3. METOPROLOL SUCCINATE [Concomitant]
     Dosage: 100 MG/DAY
  4. ACETYLSALICYLIC ACID [Concomitant]
     Dosage: 200 MG/DAY
     Route: 048
  5. PIRACETAM [Concomitant]
     Dosage: 2400 MG/DAY
  6. RANITIDINE [Concomitant]
     Dosage: 150 MG/DAY
  7. RILMENIDINE [Concomitant]
     Dosage: 1 MG/DAY
  8. AMLODIPINE [Concomitant]
     Dosage: 10 MG/DAY
  9. RAMIPRIL [Concomitant]
     Dosage: 10 MG/DAY
  10. HUMAN-INSULIN [Concomitant]

REACTIONS (19)
  - BLOOD CREATININE INCREASED [None]
  - BODY TEMPERATURE INCREASED [None]
  - C-REACTIVE PROTEIN INCREASED [None]
  - DIABETES MELLITUS [None]
  - DRUG INTERACTION [None]
  - HAEMORRHAGE SUBCUTANEOUS [None]
  - HAEMORRHAGIC ANAEMIA [None]
  - HEPATIC ENZYME INCREASED [None]
  - HYPERBILIRUBINAEMIA [None]
  - HYPERCOAGULATION [None]
  - HYPERGLYCAEMIA [None]
  - HYPOKINESIA [None]
  - INTERNATIONAL NORMALISED RATIO INCREASED [None]
  - LEUKOCYTOSIS [None]
  - MYOGLOBINAEMIA [None]
  - NEUROPATHY PERIPHERAL [None]
  - PAIN IN EXTREMITY [None]
  - PARAESTHESIA [None]
  - SINUS TACHYCARDIA [None]
